FAERS Safety Report 8295610-8 (Version None)
Quarter: 2012Q2

REPORT INFORMATION
  Report Type: 
  Country: None (occurrence: None)
  Receive Date: 20120416
  Receipt Date: 20120401
  Transmission Date: 20120825
  Serious: Yes (Life-Threatening)
  Sender: FDA-Public Use
  Company Number: B0791086A

PATIENT
  Age: 8 Year
  Sex: Male

DRUGS (1)
  1. CEFUROXIME SODIUM [Suspect]
     Indication: UPPER RESPIRATORY TRACT INFECTION
     Dosage: 3 GRAM(S) / INTRAVENOUS
     Route: 042

REACTIONS (3)
  - SYNCOPE [None]
  - FALL [None]
  - ANAPHYLACTIC SHOCK [None]
